FAERS Safety Report 4569322-8 (Version None)
Quarter: 2005Q1

REPORT INFORMATION
  Report Type: 
  Country: None (occurrence: None)
  Receive Date: 20050201
  Receipt Date: 20050118
  Transmission Date: 20050727
  Serious: Yes (Hospitalization)
  Sender: FDA-Public Use
  Company Number: 211793

PATIENT
  Age: 77 Year
  Sex: Male
  Weight: 92.1 kg

DRUGS (7)
  1. AVASTIN [Suspect]
     Indication: COLORECTAL CANCER METASTATIC
     Dosage: INTRAVENOUS
     Route: 042
     Dates: start: 20041101, end: 20041129
  2. DIGOXIN [Concomitant]
  3. LASIX [Concomitant]
  4. METOPROLOL TARTRATE [Concomitant]
  5. NIFEREX (POLYSACCHARIDE-IRON COMPLEX) [Concomitant]
  6. PEPCID AC [Concomitant]
  7. MEGACE [Concomitant]

REACTIONS (15)
  - ATRIAL FIBRILLATION [None]
  - BLOOD CREATININE INCREASED [None]
  - BLOOD GLUCOSE INCREASED [None]
  - BLOOD POTASSIUM DECREASED [None]
  - BLOOD PRESSURE INCREASED [None]
  - CEREBRAL ATROPHY [None]
  - COMA [None]
  - EJECTION FRACTION DECREASED [None]
  - GRAND MAL CONVULSION [None]
  - LUNG INFILTRATION [None]
  - MENINGITIS [None]
  - MYOCARDIAL INFARCTION [None]
  - RESPIRATORY DISTRESS [None]
  - RESPIRATORY RATE INCREASED [None]
  - SUPRAVENTRICULAR TACHYCARDIA [None]
